FAERS Safety Report 9869856 (Version 2)
Quarter: 2014Q3

REPORT INFORMATION
  Report Type: Spontaneous
  Country: FR (occurrence: None)
  Receive Date: 20140203
  Receipt Date: 20140710
  Transmission Date: 20150326
  Serious: Yes (Other)
  Sender: FDA-Public Use
  Company Number: NGX_01597_2013

PATIENT
  Age: 51 Year
  Sex: Female
  Weight: 65 kg

DRUGS (9)
  1. EMLA [Concomitant]
     Active Substance: LIDOCAINE\PRILOCAINE
  2. XYLOCAINE [Concomitant]
     Active Substance: LIDOCAINE HYDROCHLORIDE
  3. LIDOCAINE. [Concomitant]
     Active Substance: LIDOCAINE
  4. TRAMADOL [Concomitant]
     Active Substance: TRAMADOL
  5. PREGABALIN. [Concomitant]
     Active Substance: PREGABALIN
  6. QUTENZA [Suspect]
     Active Substance: CAPSAICIN
     Indication: NEURALGIA
     Dosage: PATCH
     Route: 062
     Dates: start: 20130128, end: 20130128
  7. AMITRIPTYLINE [Concomitant]
     Active Substance: AMITRIPTYLINE
  8. DAFALGAN [Concomitant]
     Active Substance: ACETAMINOPHEN
  9. ANALGESICS [Concomitant]
     Active Substance: UNSPECIFIED INGREDIENT

REACTIONS (3)
  - Accidental exposure to product [None]
  - Complication of device removal [None]
  - Cough [None]

NARRATIVE: CASE EVENT DATE: 20130128
